FAERS Safety Report 7516937-0 (Version None)
Quarter: 2011Q2

REPORT INFORMATION
  Report Type: 
  Country: None (occurrence: None)
  Receive Date: 20110526
  Receipt Date: 20110526
  Transmission Date: 20111010
  Serious: Yes (Life-Threatening, Hospitalization)
  Sender: FDA-Public Use
  Company Number: None

PATIENT
  Age: 27 Year
  Sex: Female
  Weight: 63.5036 kg

DRUGS (1)
  1. MOTRIN [Suspect]
     Dosage: 1 TAB BID Q4H PO
     Route: 048
     Dates: start: 20060922, end: 20061009

REACTIONS (4)
  - DRUG EXPOSURE DURING PREGNANCY [None]
  - PREGNANCY [None]
  - VICTIM OF SPOUSAL ABUSE [None]
  - HAEMORRHAGE [None]
